FAERS Safety Report 6292864-4 (Version None)
Quarter: 2009Q3

REPORT INFORMATION
  Report Type: 
  Country: None (occurrence: None)
  Receive Date: 20090731
  Receipt Date: 20090722
  Transmission Date: 20100115
  Serious: Yes (Other)
  Sender: FDA-Public Use
  Company Number: PHHY2009ZA26055

PATIENT
  Age: 71 Year
  Sex: Male

DRUGS (5)
  1. DIOVAN [Suspect]
     Dosage: 160 MG/DAY
     Route: 048
     Dates: start: 20090620
  2. RENNIES [Concomitant]
     Indication: HERNIA
  3. GAVISCON [Concomitant]
     Indication: HERNIA
  4. ZINC [Concomitant]
  5. ASPARTAME [Concomitant]

REACTIONS (5)
  - BLOOD PRESSURE INCREASED [None]
  - HERNIA [None]
  - RASH [None]
  - RASH MACULAR [None]
  - RASH PRURITIC [None]
